FAERS Safety Report 8516530-7 (Version None)
Quarter: 2012Q3

REPORT INFORMATION
  Report Type: 
  Country: None (occurrence: None)
  Receive Date: 20120711
  Receipt Date: 20120711
  Transmission Date: 20120928
  Serious: Yes (Disabling, Other)
  Sender: FDA-Public Use
  Company Number: None

PATIENT
  Age: 64 Year
  Sex: Male

DRUGS (1)
  1. JEVTANA 60MG/1.5ML SANOFI AVENTIS [Suspect]
     Indication: PROSTATE CANCER METASTATIC
     Dosage: 50MG Q3W IV
     Route: 042
     Dates: start: 20110907, end: 20111030

REACTIONS (4)
  - DIARRHOEA [None]
  - MUSCULAR WEAKNESS [None]
  - DYSPNOEA [None]
  - FATIGUE [None]
